FAERS Safety Report 12981876 (Version 1)
Quarter: 2016Q4

REPORT INFORMATION
  Report Type: Spontaneous
  Country: SE (occurrence: SE)
  Receive Date: 20161129
  Receipt Date: 20161129
  Transmission Date: 20170207
  Serious: Yes (Hospitalization)
  Sender: FDA-Public Use
  Company Number: SE-ORION CORPORATION ORION PHARMA-16_00002020

PATIENT
  Age: 84 Year
  Sex: Female

DRUGS (3)
  1. FOLACIN [Concomitant]
     Active Substance: FOLIC ACID
     Dosage: STRENGTH: 1 MG
     Route: 065
  2. METHOTREXATE ORION [Suspect]
     Active Substance: METHOTREXATE
     Indication: RHEUMATOID ARTHRITIS
     Dosage: STRENGTH: 2.5 MG
     Route: 065
     Dates: start: 20160316, end: 20161106
  3. PREDNISOLON [Concomitant]
     Active Substance: PREDNISOLONE
     Dosage: STRENGTH: 2.5
     Route: 065

REACTIONS (1)
  - Alveolitis [Recovered/Resolved]

NARRATIVE: CASE EVENT DATE: 20161101
